FAERS Safety Report 21228544 (Version 1)
Quarter: 2022Q3

REPORT INFORMATION
  Report Type: Spontaneous
  Country: US (occurrence: None)
  Receive Date: 20220818
  Receipt Date: 20220818
  Transmission Date: 20221026
  Serious: Yes (Death)
  Sender: FDA-Public Use
  Company Number: None

PATIENT
  Age: 62 Year
  Sex: Female

DRUGS (3)
  1. OPSUMIT [Suspect]
     Active Substance: MACITENTAN
     Indication: Pulmonary arterial hypertension
     Dosage: FREQUENCY : DAILY;?
     Route: 048
     Dates: start: 202105
  2. TADALAFIL [Concomitant]
     Active Substance: TADALAFIL
  3. LAPATINIB [Concomitant]
     Active Substance: LAPATINIB

REACTIONS (2)
  - Disease progression [None]
  - Haemorrhagic stroke [None]

NARRATIVE: CASE EVENT DATE: 20220803
